FAERS Safety Report 9356686 (Version 1)
Quarter: 2013Q2

REPORT INFORMATION
  Report Type: Report from Study
  Country: JP (occurrence: JP)
  Receive Date: 20130619
  Receipt Date: 20130619
  Transmission Date: 20140414
  Serious: Yes (Other)
  Sender: FDA-Public Use
  Company Number: JP-009507513-1304JPN012847

PATIENT
  Age: 33 Year
  Sex: Female

DRUGS (2)
  1. MARVELON 21 [Suspect]
     Route: 048
  2. FOLLITROPIN BETA [Suspect]
     Dosage: 450 IU, QD
     Route: 030
     Dates: start: 20060815, end: 20060822

REACTIONS (1)
  - Abortion missed [Recovered/Resolved]
